FAERS Safety Report 17840961 (Version 1)
Quarter: 2020Q2

REPORT INFORMATION
  Report Type: Report from Study
  Country: BR (occurrence: BR)
  Receive Date: 20200529
  Receipt Date: 20200529
  Transmission Date: 20200714
  Serious: Yes (Other)
  Sender: FDA-Public Use
  Company Number: PHHY2019BR046095

PATIENT
  Age: 2 Year
  Sex: Male
  Weight: 14 kg

DRUGS (2)
  1. OMNITROPE [Suspect]
     Active Substance: SOMATROPIN
     Indication: CEREBRAL DISORDER
     Dosage: 0.3 MG
     Route: 058
     Dates: start: 2017
  2. PRELONE [Interacting]
     Active Substance: PREDNISOLONE
     Indication: PRODUCT USED FOR UNKNOWN INDICATION
     Dosage: UNK
     Route: 065

REACTIONS (5)
  - Aicardi^s syndrome [Unknown]
  - Product use in unapproved indication [Unknown]
  - Expired product administered [Unknown]
  - Drug interaction [Unknown]
  - Expired device used [Unknown]

NARRATIVE: CASE EVENT DATE: 201811
